FAERS Safety Report 5020950-5 (Version None)
Quarter: 2006Q2

REPORT INFORMATION
  Report Type: 
  Country: None (occurrence: None)
  Receive Date: 20060608
  Receipt Date: 20060220
  Transmission Date: 20061013
  Serious: Yes (Disabling)
  Sender: FDA-Public Use
  Company Number: ES-BRISTOL-MYERS SQUIBB COMPANY-13317896

PATIENT
  Age: 70 Year
  Sex: Male

DRUGS (2)
  1. KARVEZIDE TABS 300MG/12.5MG [Suspect]
     Dates: start: 20051110, end: 20060209
  2. INSULINE [Concomitant]
     Indication: DIABETES MELLITUS
     Dates: start: 20030101

REACTIONS (6)
  - DEFAECATION URGENCY [None]
  - DIARRHOEA [None]
  - DIZZINESS [None]
  - INTESTINAL OBSTRUCTION [None]
  - MALAISE [None]
  - NAUSEA [None]
